FAERS Safety Report 8178166 (Version 8)
Quarter: 2013Q3

REPORT INFORMATION
  Report Type: Spontaneous
  Country: US (occurrence: US)
  Receive Date: 20111012
  Receipt Date: 20130823
  Transmission Date: 20140515
  Serious: Yes (Other)
  Sender: FDA-Public Use
  Company Number: US-ROCHE-1001682

PATIENT
  Age: 23 Year
  Sex: Male
  Weight: 68.1 kg

DRUGS (1)
  1. ACCUTANE [Suspect]
     Indication: ACNE
     Route: 048
     Dates: start: 1994, end: 1994

REACTIONS (8)
  - Colitis ulcerative [Unknown]
  - Inflammatory bowel disease [Unknown]
  - Anxiety [Unknown]
  - Depression [Unknown]
  - Perineal abscess [Unknown]
  - Dry eye [Unknown]
  - Lip dry [Unknown]
  - Dry skin [Unknown]
